FAERS Safety Report 11442969 (Version 1)
Quarter: 2015Q3

REPORT INFORMATION
  Report Type: Spontaneous
  Country: US (occurrence: US)
  Receive Date: 20150901
  Receipt Date: 20150901
  Transmission Date: 20151125
  Serious: No
  Sender: FDA-Public Use
  Company Number: US-LOREAL USA PRODUCTS, INC.-2015LOR00002

PATIENT
  Age: 63 Year
  Sex: Female
  Weight: 71.2 kg

DRUGS (5)
  1. REVITALIFT UV [Suspect]
     Active Substance: AVOBENZONE\ECAMSULE\OCTOCRYLENE
     Indication: DRY SKIN PROPHYLAXIS
     Dosage: UNK UNK, 1X/DAY
     Route: 061
     Dates: start: 20150221, end: 20150224
  2. MULTIVITAMIN [Concomitant]
     Active Substance: VITAMINS
  3. VITAMIN C [Concomitant]
     Active Substance: ASCORBIC ACID
  4. RETINOL CREAM [Concomitant]
  5. VITAMIN D [Concomitant]
     Active Substance: CHOLECALCIFEROL

REACTIONS (1)
  - Pruritus [Not Recovered/Not Resolved]

NARRATIVE: CASE EVENT DATE: 20150223
